FAERS Safety Report 16232134 (Version 5)
Quarter: 2019Q3

REPORT INFORMATION
  Report Type: Spontaneous
  Country: CA (occurrence: CA)
  Receive Date: 20190424
  Receipt Date: 20190904
  Transmission Date: 20191004
  Serious: Yes (Other)
  Sender: FDA-Public Use
  Company Number: CA-CELLTRION INC.-2018CA019845

PATIENT

DRUGS (41)
  1. INFLECTRA [Suspect]
     Active Substance: INFLIXIMAB-DYYB
     Dosage: 5 MG/KG EVERY 6 WEEKS
     Route: 042
     Dates: start: 20190812
  2. CLOTRIMADERM [Concomitant]
     Active Substance: CLOTRIMAZOLE
     Dosage: 10 MG/G TID FOR 7 DAYS, BID FOR 7 DAYS
     Route: 061
  3. METRONIDAZOLE. [Concomitant]
     Active Substance: METRONIDAZOLE
     Dosage: 500 MG, UNK
     Route: 048
  4. INFLECTRA [Suspect]
     Active Substance: INFLIXIMAB-DYYB
     Dosage: 5 MG/KG, EVERY 0,2,6 WEEKS THEN EVERY 8 WEEKS
     Route: 042
     Dates: start: 20180712
  5. AZATHIOPRINE. [Concomitant]
     Active Substance: AZATHIOPRINE
     Dosage: 125 MG, 1X/DAY (50 MG, 2.5 TABS OD)
     Route: 048
     Dates: start: 2013
  6. CLOTRIMADERM [Concomitant]
     Active Substance: CLOTRIMAZOLE
     Dosage: UNK, 3X/DAY
     Route: 061
  7. CHLORHEXIDINE GLUCONATE. [Concomitant]
     Active Substance: CHLORHEXIDINE GLUCONATE
     Dosage: UNK, 1X/DAY X 5 DAYS X 3 MONTHS
     Route: 065
  8. DOCUSATE SODIUM. [Concomitant]
     Active Substance: DOCUSATE SODIUM
     Dosage: UNK
  9. LOPERAMIDE [Concomitant]
     Active Substance: LOPERAMIDE
     Dosage: 2 MG, AS NEEDED (2 MG 1TAB, 1-2 TIMES DAILY PRN)
     Route: 048
  10. APO HYDROMORPHONE [Concomitant]
     Active Substance: HYDROMORPHONE HYDROCHLORIDE
     Dosage: 1 MG, CYCLIC (EVERY 4 HOURS)
     Route: 048
  11. APO-VALACYCLOVIR [Concomitant]
     Active Substance: VALACYCLOVIR HYDROCHLORIDE
     Dosage: 1000 MG, 2X/DAY (500 MG, 2 TABS BID FOR 10 DAYS)
     Route: 048
  12. PRO-AZITHROMYCINE [Concomitant]
     Dosage: 2000 MG, (250 MG, 8 TABS IMMEDIATELY)
     Route: 048
  13. CLARITHROMYCINE [Concomitant]
     Active Substance: CLARITHROMYCIN
     Dosage: 500 MG, UNK
     Route: 065
  14. PRO CIPROFLOXACIN [Concomitant]
     Dosage: 500 MG, UNK
     Route: 065
  15. CAL D [Concomitant]
     Dosage: 500 MG, UNK
     Route: 065
  16. INFLECTRA [Suspect]
     Active Substance: INFLIXIMAB-DYYB
     Dosage: 5 MG/KG Q 0, 2, 6 WEEKS, THEN EVERY 8 WEEKS
     Route: 042
     Dates: start: 20190228
  17. CLINDAMYCIN. [Concomitant]
     Active Substance: CLINDAMYCIN
     Dosage: 150 MG 3 DF, 3X/DAY (EVERY 8 HOURS X 3 DAYS)
     Route: 048
  18. OLESTYR [Concomitant]
     Active Substance: CHOLESTYRAMINE
     Dosage: UNK
     Route: 065
  19. ERYTHROMYCIN. [Concomitant]
     Active Substance: ERYTHROMYCIN
     Dosage: UNK
     Route: 065
  20. PREDNISONE. [Concomitant]
     Active Substance: PREDNISONE
     Dosage: 5 MG, UNK
     Route: 065
  21. CAL D [Concomitant]
     Dosage: UNK (400)
     Route: 065
  22. INFLECTRA [Suspect]
     Active Substance: INFLIXIMAB-DYYB
     Dosage: 5 MG/KG, EVERY 0,2,6 WEEKS THEN EVERY 8 WEEKS
     Route: 042
     Dates: start: 20180906
  23. INFLECTRA [Suspect]
     Active Substance: INFLIXIMAB-DYYB
     Dosage: 5 MG/KG EVERY 6 WEEKS
     Route: 042
     Dates: start: 20190409
  24. INFLECTRA [Suspect]
     Active Substance: INFLIXIMAB-DYYB
     Dosage: 5 MG/KG EVERY 6 WEEKS
     Route: 042
     Dates: start: 20190522
  25. PRO CIPROFLOXACIN [Concomitant]
     Dosage: UNK
     Route: 065
  26. DICETEL [Concomitant]
     Active Substance: PINAVERIUM BROMIDE
     Dosage: 50 MG, UNK
     Route: 065
  27. INFLECTRA [Suspect]
     Active Substance: INFLIXIMAB-DYYB
     Dosage: 5 MG/KG EVERY 6 WEEKS
     Route: 042
     Dates: start: 20190702
  28. COLYTE [Concomitant]
     Active Substance: POLYETHYLENE GLYCOL 3350\POTASSIUM CHLORIDE\SODIUM BICARBONATE\SODIUM CHLORIDE\SODIUM SULFATE ANHYDROUS
     Dosage: 4000 ML (278G/4L)
     Route: 048
  29. TYLENOL EXTRA STRENGTH [Concomitant]
     Active Substance: ACETAMINOPHEN
     Dosage: 500 MG 1-2 TABS, 4X/DAY (EVERY 6 HOURS)
     Route: 048
  30. CEFAZOLINE [Concomitant]
     Active Substance: CEFAZOLIN SODIUM
     Dosage: UNK 2G/20ML
     Route: 065
  31. PRO-CEFADROXIL [Concomitant]
     Dosage: 500 MG, UNK
     Route: 065
  32. GENTEAL SEVERE [Concomitant]
     Active Substance: HYPROMELLOSE 2910 (4000 MPA.S)
     Dosage: UNK
     Route: 065
  33. DOCUSATE SODIUM. [Concomitant]
     Active Substance: DOCUSATE SODIUM
     Dosage: 100 MG, UNK
     Route: 065
  34. INFLECTRA [Suspect]
     Active Substance: INFLIXIMAB-DYYB
     Indication: CROHN^S DISEASE
     Dosage: 5 MG/KG, EVERY 0, 2, 6 WEEKS, THEN EVERY 8 WEEKS
     Route: 042
     Dates: start: 20180404, end: 20190228
  35. INFLECTRA [Suspect]
     Active Substance: INFLIXIMAB-DYYB
     Dosage: 5 MG/KG, EVERY 0, 2, 6 WEEKS, THEN EVERY 8 WEEKS
     Route: 042
     Dates: start: 20180417
  36. INFLECTRA [Suspect]
     Active Substance: INFLIXIMAB-DYYB
     Dosage: 5 MG/KG, EVERY 0,2,6 WEEKS THEN EVERY 8 WEEKS
     Route: 042
     Dates: start: 20180517
  37. INFLECTRA [Suspect]
     Active Substance: INFLIXIMAB-DYYB
     Dosage: 5 MG/KG, EVERY 0,2,6 WEEKS THEN EVERY 8 WEEKS
     Route: 042
     Dates: start: 20181101
  38. APO-BISACODYL [Concomitant]
     Active Substance: BISACODYL
     Dosage: 5 MG, UNK
     Route: 048
  39. AURO CEFIXIME [Concomitant]
     Active Substance: CEFIXIME
     Dosage: 800 MG, (400 MG, 2 TABS IMMEDIATELY)
     Route: 048
  40. CLOTRIMADERM [Concomitant]
     Active Substance: CLOTRIMAZOLE
     Dosage: UNK, 2X/DAY
     Route: 061
  41. TARO-MUPIROCIN [Concomitant]
     Dosage: 2X/DAY (BID) X 5 DAYS X 3 MONTHS
     Route: 065

REACTIONS (24)
  - Pain [Unknown]
  - Nasopharyngitis [Unknown]
  - Heart rate irregular [Unknown]
  - Tremor [Recovered/Resolved]
  - Chills [Recovered/Resolved]
  - Rhinorrhoea [Unknown]
  - Nasal discharge discolouration [Unknown]
  - Fear of injection [Unknown]
  - Intentional product use issue [Unknown]
  - Hot flush [Recovered/Resolved]
  - Presyncope [Unknown]
  - Haemorrhage [Unknown]
  - Heart rate increased [Unknown]
  - Discomfort [Recovered/Resolved]
  - Slow response to stimuli [Recovered/Resolved]
  - Heart rate decreased [Unknown]
  - Condition aggravated [Recovering/Resolving]
  - Gastrointestinal inflammation [Not Recovered/Not Resolved]
  - Off label use [Unknown]
  - Vein collapse [Recovered/Resolved]
  - Pallor [Recovered/Resolved]
  - Blood pressure decreased [Unknown]
  - Incorrect dose administered [Unknown]
  - Off label use [Unknown]

NARRATIVE: CASE EVENT DATE: 20180417
